FAERS Safety Report 23814630 (Version 1)
Quarter: 2024Q2

REPORT INFORMATION
  Report Type: Spontaneous
  Country: US (occurrence: None)
  Receive Date: 20240502
  Receipt Date: 20240502
  Transmission Date: 20240715
  Serious: No
  Sender: FDA-Public Use
  Company Number: None

PATIENT
  Age: 83 Year
  Sex: Female

DRUGS (1)
  1. ZORYVE [Suspect]
     Active Substance: ROFLUMILAST
     Indication: Psoriasis
     Dosage: APPLY TO AFFECTED AREA (S)  DAILY AS DIRECTED??THERAPY STOPPED; ON HOLD
     Route: 061

REACTIONS (1)
  - Cerebrovascular accident [None]
